FAERS Safety Report 8007385-8 (Version None)
Quarter: 2011Q4

REPORT INFORMATION
  Report Type: 
  Country: None (occurrence: None)
  Receive Date: 20111227
  Receipt Date: 20111219
  Transmission Date: 20120403
  Serious: Yes (Other)
  Sender: FDA-Public Use
  Company Number: CA-PFIZER INC-2011274520

PATIENT
  Age: 55 Year
  Sex: Female
  Weight: 49.887 kg

DRUGS (8)
  1. CARBOPLATIN [Interacting]
     Indication: CERVIX CARCINOMA
     Dosage: UNK
     Dates: start: 20010801
  2. MINOCYCLINE HCL [Interacting]
     Dosage: UNK
     Dates: start: 20110101
  3. BACTRIM [Interacting]
     Dosage: UNK
  4. SYNTHROID [Concomitant]
     Indication: HYPOTHYROIDISM
     Dosage: 100 UG, 1X/DAY
     Dates: start: 19800101
  5. DILANTIN [Interacting]
     Indication: POST-TRAUMATIC EPILEPSY
     Dosage: 275 MG, 2X/WEEK
     Route: 048
     Dates: start: 19890101, end: 20111027
  6. DILANTIN [Interacting]
     Indication: CONVULSION
     Dosage: 300 MG, 5 TIMES A WEEK, AT BEDTIME
     Route: 048
     Dates: start: 19741101, end: 19890101
  7. BIAXIN [Interacting]
     Dosage: UNK
  8. PHENOBARBITAL TAB [Suspect]
     Dosage: AT BEDTIME
     Dates: start: 19741101, end: 20111027

REACTIONS (39)
  - MENTAL IMPAIRMENT [None]
  - FEELING ABNORMAL [None]
  - ANTICONVULSANT DRUG LEVEL DECREASED [None]
  - DRUG EFFECT INCREASED [None]
  - FALL [None]
  - CERVIX CARCINOMA [None]
  - DYSPHAGIA [None]
  - HYPOAESTHESIA [None]
  - ASTHENIA [None]
  - DRUG INTERACTION [None]
  - PERSONALITY DISORDER [None]
  - INCREASED APPETITE [None]
  - OBSESSIVE-COMPULSIVE DISORDER [None]
  - FATIGUE [None]
  - BRADYPHRENIA [None]
  - LYME DISEASE [None]
  - DROP ATTACKS [None]
  - DYSKINESIA [None]
  - PARAESTHESIA [None]
  - WEIGHT DECREASED [None]
  - TOXICITY TO VARIOUS AGENTS [None]
  - NAUSEA [None]
  - DEPRESSION [None]
  - HYPOREFLEXIA [None]
  - MUSCULAR WEAKNESS [None]
  - ABNORMAL SLEEP-RELATED EVENT [None]
  - NYSTAGMUS [None]
  - SOMNOLENCE [None]
  - DYSARTHRIA [None]
  - AREFLEXIA [None]
  - CHOLECYSTITIS ACUTE [None]
  - VIBRATORY SENSE INCREASED [None]
  - ANTICONVULSANT DRUG LEVEL INCREASED [None]
  - GAIT DISTURBANCE [None]
  - CENTRAL NERVOUS SYSTEM LESION [None]
  - SPEECH DISORDER [None]
  - PAIN IN EXTREMITY [None]
  - BLOOD PRESSURE DECREASED [None]
  - NERVOUSNESS [None]
